FAERS Safety Report 9128193 (Version 1)
Quarter: 2013Q1

REPORT INFORMATION
  Report Type: Spontaneous
  Country: SE (occurrence: SE)
  Receive Date: 20130228
  Receipt Date: 20130228
  Transmission Date: 20140127
  Serious: Yes (Other)
  Sender: FDA-Public Use
  Company Number: SE-ELI_LILLY_AND_COMPANY-SE201302006092

PATIENT
  Sex: Male

DRUGS (3)
  1. STRATTERA [Suspect]
     Dosage: 20 MG, QD
     Dates: start: 20130117
  2. CONCERTA [Concomitant]
     Dosage: 1 DF, QD
  3. CIRCADIN [Concomitant]

REACTIONS (4)
  - Suicidal ideation [Recovered/Resolved]
  - Depressed mood [Recovered/Resolved]
  - Emotional poverty [Recovered/Resolved]
  - Aggression [Recovered/Resolved]
